FAERS Safety Report 6264999-3 (Version None)
Quarter: 2009Q3

REPORT INFORMATION
  Report Type: 
  Country: None (occurrence: None)
  Receive Date: 20090709
  Receipt Date: 20090709
  Transmission Date: 20100115
  Serious: Yes (Death, Life-Threatening, Hospitalization)
  Sender: FDA-Public Use
  Company Number: None

PATIENT
  Sex: Male
  Weight: 59 kg

DRUGS (1)
  1. RISPERIDONE [Suspect]
     Indication: MENTAL DISORDER
     Dosage: 2 MG 3X/DY
     Dates: start: 20090123

REACTIONS (5)
  - CARDIAC DISORDER [None]
  - DYSPHAGIA [None]
  - RESPIRATORY DISORDER [None]
  - TREMOR [None]
  - UNEVALUABLE EVENT [None]
